FAERS Safety Report 20962981 (Version 2)
Quarter: 2022Q3

REPORT INFORMATION
  Report Type: Spontaneous
  Country: US (occurrence: US)
  Receive Date: 20220615
  Receipt Date: 20220715
  Transmission Date: 20221026
  Serious: Yes (Hospitalization, Other)
  Sender: FDA-Public Use
  Company Number: US-FreseniusKabi-FK202207835

PATIENT
  Sex: Male
  Weight: 102 kg

DRUGS (4)
  1. POLOCAINE [Suspect]
     Active Substance: MEPIVACAINE HYDROCHLORIDE
  2. POLOCAINE [Suspect]
     Active Substance: MEPIVACAINE HYDROCHLORIDE
     Indication: Spinal anaesthesia
     Dosage: CONCENTRATION: 20MG/ML, DOSE: 40MG (2CC)?ONCE IN A SINGLE SHOT SPINAL PLACED AT L3-L4?ROUTE: SPINAL
     Dates: start: 20220525, end: 20220525
  3. OMEPRAZOLE [Concomitant]
     Active Substance: OMEPRAZOLE
     Indication: Dyspepsia
  4. CELEXA [Concomitant]
     Active Substance: CITALOPRAM HYDROBROMIDE
     Indication: Depression

REACTIONS (4)
  - Paraplegia [Not Recovered/Not Resolved]
  - Myelitis [Not Recovered/Not Resolved]
  - Urinary retention [Not Recovered/Not Resolved]
  - Drug ineffective [Unknown]

NARRATIVE: CASE EVENT DATE: 20220525
